FAERS Safety Report 10896336 (Version 1)
Quarter: 2015Q1

REPORT INFORMATION
  Report Type: Spontaneous
  Country: US (occurrence: None)
  Receive Date: 20150302
  Receipt Date: 20150302
  Transmission Date: 20150721
  Serious: Yes (Disabling)
  Sender: FDA-Public Use
  Company Number: None

PATIENT
  Age: 8 Year
  Sex: Male
  Weight: 27.22 kg

DRUGS (1)
  1. GUANFACINE ER [Suspect]
     Active Substance: GUANFACINE
     Indication: ATTENTION DEFICIT/HYPERACTIVITY DISORDER
     Dosage: TAKEN BY MOUTH
     Dates: start: 20150105, end: 20150226

REACTIONS (7)
  - Product substitution issue [None]
  - Aggression [None]
  - Drug ineffective [None]
  - Educational problem [None]
  - Drug effect decreased [None]
  - Emotional disorder [None]
  - Tic [None]

NARRATIVE: CASE EVENT DATE: 20150226
